FAERS Safety Report 8304155-8 (Version None)
Quarter: 2012Q2

REPORT INFORMATION
  Report Type: 
  Country: None (occurrence: None)
  Receive Date: 20120423
  Receipt Date: 20120416
  Transmission Date: 20120825
  Serious: Yes (Hospitalization)
  Sender: FDA-Public Use
  Company Number: DE-JNJFOC-20120304987

PATIENT
  Sex: Female
  Weight: 85 kg

DRUGS (5)
  1. ENOXAPARIN [Concomitant]
     Route: 058
  2. XARELTO [Suspect]
     Indication: ANTICOAGULANT THERAPY
     Route: 048
  3. CANDESARTAN CILEXETIL [Concomitant]
  4. XARELTO [Suspect]
     Indication: HIP ARTHROPLASTY
     Route: 048
  5. AMITRIPTYLINE HCL [Concomitant]

REACTIONS (6)
  - ASPARTATE AMINOTRANSFERASE INCREASED [None]
  - BLOOD ALKALINE PHOSPHATASE INCREASED [None]
  - PULMONARY EMBOLISM [None]
  - GAMMA-GLUTAMYLTRANSFERASE INCREASED [None]
  - ALANINE AMINOTRANSFERASE INCREASED [None]
  - BLOOD BILIRUBIN INCREASED [None]
